FAERS Safety Report 4381363-2 (Version None)
Quarter: 2004Q2

REPORT INFORMATION
  Report Type: 
  Country: None (occurrence: None)
  Receive Date: 20040617
  Receipt Date: 20040617
  Transmission Date: 20050107
  Serious: Yes (Hospitalization)
  Sender: FDA-Public Use
  Company Number: None

PATIENT
  Age: 71 Year
  Sex: Male
  Weight: 101.6057 kg

DRUGS (2)
  1. GEMCITABINE [Suspect]
     Indication: PANCREATIC CARCINOMA
     Dosage: 2190 MG IV WEEKLY
     Route: 042
     Dates: start: 20040525
  2. GEMCITABINE [Suspect]
     Indication: PANCREATIC CARCINOMA
     Dosage: 2190 MG IV WEEKLY
     Route: 042
     Dates: start: 20040601

REACTIONS (11)
  - ANAEMIA [None]
  - ASTHENIA [None]
  - BENIGN PROSTATIC HYPERPLASIA [None]
  - BLOOD URINE PRESENT [None]
  - DIARRHOEA [None]
  - DYSURIA [None]
  - JAUNDICE CHOLESTATIC [None]
  - METASTASES TO LIVER [None]
  - PANCREATIC CARCINOMA METASTATIC [None]
  - THROMBOCYTOPENIA [None]
  - URINARY TRACT INFECTION [None]
